FAERS Safety Report 5011352-6 (Version None)
Quarter: 2006Q2

REPORT INFORMATION
  Report Type: 
  Country: None (occurrence: None)
  Receive Date: 20060524
  Receipt Date: 20060516
  Transmission Date: 20061013
  Serious: Yes (Hospitalization, Other)
  Sender: FDA-Public Use
  Company Number: 2006BI005915

PATIENT
  Age: 28 Year
  Sex: Female

DRUGS (1)
  1. AVONEX [Suspect]
     Indication: MULTIPLE SCLEROSIS
     Dosage: 30 UG; QW; IM
     Route: 030
     Dates: start: 20051022

REACTIONS (6)
  - CONVULSION [None]
  - DIAPHRAGMATIC PARALYSIS [None]
  - DYSPNOEA [None]
  - GRAND MAL CONVULSION [None]
  - RESPIRATORY DISORDER [None]
  - STRESS [None]
